FAERS Safety Report 4811497-7 (Version None)
Quarter: 2005Q4

REPORT INFORMATION
  Report Type: 
  Country: None (occurrence: None)
  Receive Date: 20051027
  Receipt Date: 20051005
  Transmission Date: 20060501
  Serious: Yes (Hospitalization)
  Sender: FDA-Public Use
  Company Number: BR-ABBOTT-05P-020-0312938-00

PATIENT
  Sex: Female

DRUGS (6)
  1. VALPAKINE [Suspect]
     Indication: EPILEPSY
     Route: 048
     Dates: start: 19900101, end: 20050925
  2. VALPAKINE [Suspect]
     Route: 048
     Dates: start: 20050925
  3. SERTRALINE HCL [Concomitant]
     Indication: DEPRESSION
     Route: 048
     Dates: start: 20040101
  4. NORTRIPTYLINE HCL [Concomitant]
     Indication: DEPRESSION
     Route: 048
     Dates: start: 20050101
  5. LEVOTHYROXINE SODIUM [Concomitant]
     Indication: DEPRESSION
     Route: 048
     Dates: start: 20040101
  6. CAPTOPRIL [Concomitant]
     Indication: HYPERTENSION
     Route: 048
     Dates: start: 19980101

REACTIONS (2)
  - CONVULSION [None]
  - STRESS [None]
